FAERS Safety Report 7605274-1 (Version None)
Quarter: 2011Q3

REPORT INFORMATION
  Report Type: 
  Country: None (occurrence: None)
  Receive Date: 20110712
  Receipt Date: 20110712
  Transmission Date: 20111222
  Serious: Yes (Hospitalization)
  Sender: FDA-Public Use
  Company Number: None

PATIENT
  Age: 86 Year
  Sex: Male
  Weight: 92.4 kg

DRUGS (1)
  1. RIVASTIGMINE [Suspect]
     Indication: MEMORY IMPAIRMENT
     Dosage: 3 MG EVERY DAY PO
     Route: 048
     Dates: start: 20050525, end: 20050705

REACTIONS (2)
  - BRADYCARDIA [None]
  - ATRIOVENTRICULAR BLOCK SECOND DEGREE [None]
